FAERS Safety Report 23496508 (Version 1)
Quarter: 2024Q1

REPORT INFORMATION
  Report Type: Spontaneous
  Country: US (occurrence: US)
  Receive Date: 20240208
  Receipt Date: 20240208
  Transmission Date: 20240410
  Serious: No
  Sender: FDA-Public Use
  Company Number: USA--2022-US-000960

PATIENT
  Sex: Female

DRUGS (1)
  1. OLOPATADINE HYDROCHLORIDE [Suspect]
     Active Substance: OLOPATADINE HYDROCHLORIDE
     Dates: start: 20180520

REACTIONS (2)
  - Eye pain [Recovered/Resolved]
  - Foreign body [Recovered/Resolved]

NARRATIVE: CASE EVENT DATE: 20180520
